FAERS Safety Report 26167304 (Version 1)
Quarter: 2025Q4

REPORT INFORMATION
  Report Type: Spontaneous
  Country: CN (occurrence: CN)
  Receive Date: 20251217
  Receipt Date: 20251217
  Transmission Date: 20260118
  Serious: Yes (Other)
  Sender: ACCORD
  Company Number: CN-Accord-517991

PATIENT
  Age: 54 Year
  Sex: Male

DRUGS (6)
  1. ZOLEDRONIC ACID [Suspect]
     Active Substance: ZOLEDRONIC ACID
     Indication: Metastases to bone
     Dosage: 4.0 MG EVERY 3-4 WEEKS
     Dates: start: 2023
  2. BEVACIZUMAB [Concomitant]
     Active Substance: BEVACIZUMAB
     Indication: Lung carcinoma cell type unspecified stage IV
     Dates: start: 2023
  3. BEVACIZUMAB [Concomitant]
     Active Substance: BEVACIZUMAB
     Indication: Metastases to kidney
     Dates: start: 2023
  4. BEVACIZUMAB [Concomitant]
     Active Substance: BEVACIZUMAB
     Indication: Metastases to adrenals
     Dates: start: 2023
  5. BEVACIZUMAB [Concomitant]
     Active Substance: BEVACIZUMAB
     Indication: Metastases to lymph nodes
     Dates: start: 2023
  6. BEVACIZUMAB [Concomitant]
     Active Substance: BEVACIZUMAB
     Indication: Metastases to bone
     Dates: start: 2023

REACTIONS (1)
  - Creatinine renal clearance decreased [Recovered/Resolved]

NARRATIVE: CASE EVENT DATE: 20230101
